FAERS Safety Report 5408321-0 (Version None)
Quarter: 2007Q3

REPORT INFORMATION
  Report Type: 
  Country: None (occurrence: None)
  Receive Date: 20070806
  Receipt Date: 20070806
  Transmission Date: 20080115
  Serious: Yes (Hospitalization)
  Sender: FDA-Public Use
  Company Number: None

PATIENT
  Age: 59 Year
  Sex: Male

DRUGS (2)
  1. SIMVASTATIN [Suspect]
     Indication: HYPERLIPIDAEMIA
     Dosage: 80MG HS PO
     Route: 048
     Dates: start: 20050322, end: 20070518
  2. NIACIN [Suspect]
     Dosage: 750MG HS PO
     Route: 048
     Dates: start: 20050925

REACTIONS (1)
  - RHABDOMYOLYSIS [None]
